FAERS Safety Report 25317030 (Version 1)
Quarter: 2025Q2

REPORT INFORMATION
  Report Type: Spontaneous
  Country: CN (occurrence: CN)
  Receive Date: 20250515
  Receipt Date: 20250515
  Transmission Date: 20250716
  Serious: Yes (Life-Threatening, Hospitalization, Other)
  Sender: STRIDES
  Company Number: None

PATIENT
  Age: 33 Year
  Sex: Female

DRUGS (16)
  1. LEVETIRACETAM [Suspect]
     Active Substance: LEVETIRACETAM
     Indication: Product used for unknown indication
     Route: 065
  2. LEVETIRACETAM [Suspect]
     Active Substance: LEVETIRACETAM
     Indication: Epilepsy
  3. CETIRIZINE [Suspect]
     Active Substance: CETIRIZINE HYDROCHLORIDE
     Indication: Antiallergic therapy
     Route: 065
  4. CALAMINE [Suspect]
     Active Substance: CALAMINE\FERRIC OXIDE RED\ZINC OXIDE
     Indication: Antiallergic therapy
     Route: 065
  5. EBASTINE [Suspect]
     Active Substance: EBASTINE
     Indication: Antiallergic therapy
     Route: 065
  6. PHENYTOIN SODIUM [Suspect]
     Active Substance: PHENYTOIN SODIUM
     Indication: Product used for unknown indication
     Route: 065
  7. PHENYTOIN SODIUM [Suspect]
     Active Substance: PHENYTOIN SODIUM
     Indication: Epilepsy
  8. ALPROSTADIL [Concomitant]
     Active Substance: ALPROSTADIL
     Indication: Promotion of peripheral circulation
     Route: 065
  9. BIAPENEM [Concomitant]
     Active Substance: BIAPENEM
     Indication: Infection
     Route: 065
  10. GANCICLOVIR [Concomitant]
     Active Substance: GANCICLOVIR
     Indication: Antiviral treatment
     Route: 065
  11. LANSOPRAZOLE [Concomitant]
     Active Substance: LANSOPRAZOLE
     Indication: Acidosis
     Route: 065
  12. L-GLUTAMINE [Concomitant]
     Active Substance: GLUTAMINE
     Indication: Gastrointestinal disorder
     Route: 065
  13. L-GLUTAMINE [Concomitant]
     Active Substance: GLUTAMINE
     Indication: Nutritional supplementation
  14. SODIUM GUALENATE [Concomitant]
     Active Substance: SODIUM GUALENATE
     Indication: Prophylaxis
     Route: 065
  15. SODIUM GUALENATE [Concomitant]
     Active Substance: SODIUM GUALENATE
     Indication: Nutritional supplementation
  16. TIOPRONIN [Concomitant]
     Active Substance: TIOPRONIN
     Indication: Prophylaxis
     Route: 065

REACTIONS (5)
  - Diabetes mellitus [Recovered/Resolved]
  - Drug-induced liver injury [Recovered/Resolved]
  - Gastroenteritis [Recovered/Resolved]
  - Drug reaction with eosinophilia and systemic symptoms [Recovered/Resolved]
  - Drug ineffective [Unknown]
